FAERS Safety Report 8768255 (Version 3)
Quarter: 2012Q4

REPORT INFORMATION
  Report Type: Report from Study
  Country: FR (occurrence: FR)
  Receive Date: 20120905
  Receipt Date: 20120924
  Transmission Date: 20130627
  Serious: Yes (Hospitalization)
  Sender: FDA-Public Use
  Company Number: FR-GLAXOSMITHKLINE-B0827798A

PATIENT
  Age: 60 Year
  Sex: Male
  Weight: 65 kg

DRUGS (5)
  1. PAZOPANIB [Suspect]
     Indication: LEIOMYOSARCOMA
     Route: 048
     Dates: start: 20120509
  2. GEMCITABINE [Suspect]
     Indication: LEIOMYOSARCOMA
     Route: 042
     Dates: start: 20120509
  3. KENZEN [Concomitant]
     Indication: HYPERTENSION
     Route: 048
     Dates: start: 20120606, end: 20120827
  4. FUROSEMIDE [Concomitant]
     Indication: HYPERTENSION
     Route: 048
     Dates: start: 20120808, end: 20120827
  5. ADALATE [Concomitant]
     Indication: HYPERTENSION
     Dates: start: 20120507, end: 20120808

REACTIONS (1)
  - Dyspnoea [Recovered/Resolved]
